FAERS Safety Report 4439544-5 (Version None)
Quarter: 2004Q3

REPORT INFORMATION
  Report Type: 
  Country: None (occurrence: None)
  Receive Date: 20040901
  Receipt Date: 20040901
  Transmission Date: 20050211
  Serious: Yes (Hospitalization)
  Sender: FDA-Public Use
  Company Number: None

PATIENT
  Sex: Male

DRUGS (6)
  1. DILANTIN [Suspect]
     Indication: CONVULSION
     Dosage: 100 MG PO TID [ PRIOR TO ADMISSION]
     Route: 048
  2. PHENOBARBITAL TAB [Concomitant]
  3. M.V.I. [Concomitant]
  4. PLAVIX [Concomitant]
  5. FOLIC ACID [Concomitant]
  6. PROZAC [Concomitant]

REACTIONS (3)
  - ANTICONVULSANT DRUG LEVEL ABOVE THERAPEUTIC [None]
  - COMA [None]
  - MENTAL STATUS CHANGES [None]
